FAERS Safety Report 8571145-X (Version None)
Quarter: 2012Q3

REPORT INFORMATION
  Report Type: 
  Country: None (occurrence: None)
  Receive Date: 20120806
  Receipt Date: 20120801
  Transmission Date: 20120928
  Serious: No
  Sender: FDA-Public Use
  Company Number: US-PFIZER INC-2012186959

PATIENT
  Age: 35 Year
  Sex: Female

DRUGS (1)
  1. XALKORI [Suspect]
     Indication: NON-SMALL CELL LUNG CANCER

REACTIONS (2)
  - BLOOD ALKALINE PHOSPHATASE ABNORMAL [None]
  - ABDOMINAL DISCOMFORT [None]
